FAERS Safety Report 5528398-1 (Version None)
Quarter: 2007Q4

REPORT INFORMATION
  Report Type: 
  Country: None (occurrence: None)
  Receive Date: 20071121
  Receipt Date: 20071114
  Transmission Date: 20080405
  Serious: Yes (Death, Life-Threatening, Hospitalization, Other)
  Sender: FDA-Public Use
  Company Number: 2007SP020357

PATIENT
  Age: 61 Year
  Sex: Male
  Weight: 68 kg

DRUGS (8)
  1. TEMOZOLOMIDE [Suspect]
     Indication: GASTROINTESTINAL CARCINOMA
     Dosage: 270 MG; QD; PO
     Route: 048
     Dates: start: 20070820, end: 20071006
  2. TEMOZOLOMIDE [Suspect]
     Indication: MALIGNANT RESPIRATORY TRACT NEOPLASM
     Dosage: 270 MG; QD; PO
     Route: 048
     Dates: start: 20070820, end: 20071006
  3. LOSEC [Concomitant]
  4. PENICILLIN G [Concomitant]
  5. MST [Concomitant]
  6. DEXAMETHASONE TAB [Concomitant]
  7. ORAMORPH SR [Concomitant]
  8. NUROFEN [Concomitant]

REACTIONS (3)
  - ATRIAL FIBRILLATION [None]
  - DISEASE PROGRESSION [None]
  - PULMONARY OEDEMA [None]
